FAERS Safety Report 7805467-4 (Version None)
Quarter: 2011Q4

REPORT INFORMATION
  Report Type: 
  Country: None (occurrence: None)
  Receive Date: 20111010
  Receipt Date: 20110926
  Transmission Date: 20120403
  Serious: Yes (Hospitalization)
  Sender: FDA-Public Use
  Company Number: PHHY2011DE85836

PATIENT
  Sex: Female
  Weight: 68 kg

DRUGS (3)
  1. SOMAVERT [Suspect]
     Indication: ACROMEGALY
     Route: 058
     Dates: start: 20081201
  2. SANDOSTATIN LAR [Suspect]
     Indication: ACROMEGALY
     Dosage: 30 MG, QMO
     Route: 058
     Dates: start: 20081201
  3. CEFOTAXIME [Concomitant]
     Indication: CHRONIC SINUSITIS
     Route: 048
     Dates: start: 20110913, end: 20110919

REACTIONS (4)
  - ATAXIA [None]
  - MUSCULOSKELETAL STIFFNESS [None]
  - PARALYSIS [None]
  - MYDRIASIS [None]
